FAERS Safety Report 25013826 (Version 1)
Quarter: 2025Q1

REPORT INFORMATION
  Report Type: Spontaneous
  Country: US (occurrence: None)
  Receive Date: 20250226
  Receipt Date: 20250226
  Transmission Date: 20250409
  Serious: No
  Sender: FDA-CTU
  Company Number: None

PATIENT

DRUGS (1)
  1. OPSUMIT [Suspect]
     Active Substance: MACITENTAN

REACTIONS (5)
  - Oxygen saturation abnormal [None]
  - Dyspnoea [None]
  - Therapy cessation [None]
  - Peripheral swelling [None]
  - Peripheral swelling [None]
